FAERS Safety Report 12227056 (Version 1)
Quarter: 2016Q1

REPORT INFORMATION
  Report Type: Spontaneous
  Country: NL (occurrence: NL)
  Receive Date: 20160331
  Receipt Date: 20160331
  Transmission Date: 20160526
  Serious: Yes (Life-Threatening, Hospitalization, Disabling)
  Sender: FDA-Public Use
  Company Number: NL-TEVA-646750ACC

PATIENT
  Sex: Male
  Weight: 16 kg

DRUGS (2)
  1. BECLOMETASON NEVEL PCH NEUSSPRAY 50MCG/DO FL 200DO [Suspect]
     Active Substance: BECLOMETHASONE DIPROPIONATE
     Indication: OTITIS MEDIA
     Dosage: TWICE SPRAYING IN BOTH NOSTRILS
     Route: 045
     Dates: start: 201405, end: 20140828
  2. BROXIL POEDER VOOR SUSPENSIE 125MG/5ML [Concomitant]
     Dosage: 24 ML DAILY; THREE TIMES DAILY 8 ML
     Route: 048
     Dates: end: 20140829

REACTIONS (6)
  - Skin striae [Not Recovered/Not Resolved]
  - Sleep disorder [Unknown]
  - Oral candidiasis [Recovered/Resolved]
  - Immunosuppression [Recovered/Resolved]
  - Diabetes mellitus [Not Recovered/Not Resolved]
  - Blood glucose abnormal [Not Recovered/Not Resolved]

NARRATIVE: CASE EVENT DATE: 2014
